FAERS Safety Report 20078799 (Version 1)
Quarter: 2021Q4

REPORT INFORMATION
  Report Type: Spontaneous
  Country: KR (occurrence: KR)
  Receive Date: 20211117
  Receipt Date: 20211117
  Transmission Date: 20220304
  Serious: Yes (Hospitalization, Other)
  Sender: FDA-Public Use
  Company Number: KR-LUPIN PHARMACEUTICALS INC.-2021-22385

PATIENT
  Age: 55 Year
  Sex: Male

DRUGS (7)
  1. RIFAMPIN [Suspect]
     Active Substance: RIFAMPIN
     Indication: Intestinal tuberculosis
     Dosage: 600 MILLIGRAM, QD
     Route: 065
  2. RIFAMPIN [Suspect]
     Active Substance: RIFAMPIN
     Indication: Pulmonary tuberculosis
  3. ETHAMBUTOL [Suspect]
     Active Substance: ETHAMBUTOL HYDROCHLORIDE
     Indication: Intestinal tuberculosis
     Dosage: 800 MILLIGRAM, QD
     Route: 065
  4. ETHAMBUTOL [Suspect]
     Active Substance: ETHAMBUTOL HYDROCHLORIDE
     Indication: Pulmonary tuberculosis
  5. PYRAZINAMIDE [Suspect]
     Active Substance: PYRAZINAMIDE
     Indication: Intestinal tuberculosis
     Dosage: 1500 MILLIGRAM, QD
     Route: 065
  6. ISONIAZID [Suspect]
     Active Substance: ISONIAZID
     Indication: Intestinal tuberculosis
     Dosage: 400 MILLIGRAM, QD
     Route: 065
  7. ISONIAZID [Suspect]
     Active Substance: ISONIAZID
     Indication: Pulmonary tuberculosis

REACTIONS (4)
  - Intestinal perforation [Recovered/Resolved]
  - Small intestinal obstruction [Recovered/Resolved]
  - Peritonitis [Recovered/Resolved]
  - Ascites [Recovered/Resolved]
